FAERS Safety Report 6785886-8 (Version None)
Quarter: 2010Q2

REPORT INFORMATION
  Report Type: 
  Country: None (occurrence: None)
  Receive Date: 20100622
  Receipt Date: 20100622
  Transmission Date: 20101027
  Serious: Yes (Hospitalization)
  Sender: FDA-Public Use
  Company Number: None

PATIENT
  Age: 66 Year
  Sex: Male
  Weight: 88.905 kg

DRUGS (1)
  1. METOCLOPRAMIDE [Suspect]
     Indication: GASTROOESOPHAGEAL REFLUX DISEASE
     Dosage: 10MG
     Dates: start: 20071201, end: 20090926

REACTIONS (22)
  - ABDOMINAL DISCOMFORT [None]
  - AGITATION [None]
  - ANXIETY [None]
  - CARDIAC DISORDER [None]
  - CHEST DISCOMFORT [None]
  - CRYING [None]
  - DEPRESSION [None]
  - DIZZINESS [None]
  - DRUG INTERACTION [None]
  - DRUG WITHDRAWAL SYNDROME [None]
  - DYSKINESIA [None]
  - DYSPNOEA [None]
  - FALL [None]
  - HYPOTONIA [None]
  - INSOMNIA [None]
  - IRRITABILITY [None]
  - MUSCLE SPASMS [None]
  - MUSCULOSKELETAL STIFFNESS [None]
  - PAIN IN EXTREMITY [None]
  - RESTLESSNESS [None]
  - SUICIDAL IDEATION [None]
  - WEIGHT DECREASED [None]
